FAERS Safety Report 5940250-6 (Version None)
Quarter: 2008Q4

REPORT INFORMATION
  Report Type: 
  Country: None (occurrence: None)
  Receive Date: 20081030
  Receipt Date: 20081021
  Transmission Date: 20090506
  Serious: Yes (Other)
  Sender: FDA-Public Use
  Company Number: 2008AP002685

PATIENT
  Age: 76 Year
  Sex: Female
  Weight: 66.6 kg

DRUGS (5)
  1. OMEPRAZOLE [Suspect]
     Indication: GASTROOESOPHAGEAL REFLUX DISEASE
     Dosage: 20 MG; BID; PO
     Route: 048
     Dates: start: 20081004, end: 20081005
  2. OMEPRAZOLE [Suspect]
     Indication: ULCER
     Dosage: 20 MG; BID; PO
     Route: 048
     Dates: start: 20081004, end: 20081005
  3. CONJUGATED ESTROGENS [Concomitant]
  4. ROSUVASTATIN [Concomitant]
  5. OMEPRAZOLE [Concomitant]

REACTIONS (4)
  - AURICULAR SWELLING [None]
  - BURNING SENSATION [None]
  - PRURITUS [None]
  - RASH [None]
